FAERS Safety Report 8302345-1 (Version None)
Quarter: 2012Q2

REPORT INFORMATION
  Report Type: 
  Country: None (occurrence: None)
  Receive Date: 20120420
  Receipt Date: 20120416
  Transmission Date: 20120825
  Serious: Yes (Death)
  Sender: FDA-Public Use
  Company Number: FR-ASTRAZENECA-2012SE24963

PATIENT
  Age: 23181 Day
  Sex: Male

DRUGS (7)
  1. ETOPOSIDE [Suspect]
     Route: 041
     Dates: start: 20120229, end: 20120302
  2. METHYLPREDNISOLONE [Concomitant]
     Dates: start: 20120229, end: 20120308
  3. NEXIUM [Suspect]
     Route: 048
     Dates: start: 20120303
  4. METOCLOPRAMIDE [Concomitant]
     Dates: start: 20120229, end: 20120308
  5. ACETAMINOPHEN [Concomitant]
     Dates: start: 20120308
  6. RATIOGRASTIM [Concomitant]
     Indication: COLONY STIMULATING FACTOR PROPHYLAXIS
     Route: 058
     Dates: start: 20120303, end: 20120307
  7. CISPLATIN [Suspect]
     Route: 041
     Dates: start: 20120229, end: 20120229

REACTIONS (2)
  - SEPSIS [None]
  - FEBRILE BONE MARROW APLASIA [None]
